FAERS Safety Report 11353759 (Version 1)
Quarter: 2015Q3

REPORT INFORMATION
  Report Type: Spontaneous
  Country: US (occurrence: US)
  Receive Date: 20150807
  Receipt Date: 20150807
  Transmission Date: 20151125
  Serious: No
  Sender: FDA-Public Use
  Company Number: US-JNJFOC-20140905604

PATIENT
  Age: 67 Year
  Sex: Female
  Weight: 79.38 kg

DRUGS (2)
  1. WOMENS ROGAINE [Suspect]
     Active Substance: MINOXIDIL
     Indication: HAIR GROWTH ABNORMAL
     Dosage: RECOMMENDED DOSAGE
     Route: 061
     Dates: start: 201406
  2. WOMENS ROGAINE [Suspect]
     Active Substance: MINOXIDIL
     Route: 061

REACTIONS (3)
  - Drug ineffective [Unknown]
  - Hair colour changes [Not Recovered/Not Resolved]
  - Product physical consistency issue [Unknown]
